FAERS Safety Report 4518101-6 (Version None)
Quarter: 2004Q4

REPORT INFORMATION
  Report Type: 
  Country: None (occurrence: None)
  Receive Date: 20041130
  Receipt Date: 20041119
  Transmission Date: 20050328
  Serious: Yes (Other)
  Sender: FDA-Public Use
  Company Number: 2004097415

PATIENT
  Age: 57 Year
  Sex: Female

DRUGS (1)
  1. OESTRING (RING)  (ESTRADIOL) [Suspect]
     Indication: ILL-DEFINED DISORDER
     Dates: start: 20030101, end: 20040101

REACTIONS (1)
  - FUNGAL INFECTION [None]
